FAERS Safety Report 22661332 (Version 1)
Quarter: 2023Q2

REPORT INFORMATION
  Report Type: Spontaneous
  Country: KR (occurrence: KR)
  Receive Date: 20230630
  Receipt Date: 20230630
  Transmission Date: 20230722
  Serious: Yes (Other)
  Sender: FDA-Public Use
  Company Number: KR-GW PHARMA-2022-KR-025005

PATIENT
  Age: 6 Year
  Sex: Male

DRUGS (4)
  1. CANNABIDIOL [Suspect]
     Active Substance: CANNABIDIOL
     Indication: Lennox-Gastaut syndrome
     Dosage: 0.5 MILLILITER, BID FOR 7 DAYS
     Route: 048
     Dates: start: 20220705
  2. CANNABIDIOL [Suspect]
     Active Substance: CANNABIDIOL
     Dosage: 1 MILLILITER, BID, FOR A WEEK
     Route: 048
     Dates: start: 20220705
  3. CANNABIDIOL [Suspect]
     Active Substance: CANNABIDIOL
     Dosage: 1.5 MILLILITER, BID, FOR A WEEK
     Route: 048
     Dates: start: 20220705
  4. CANNABIDIOL [Suspect]
     Active Substance: CANNABIDIOL
     Dosage: 1.4 MILLILITER, BID
     Route: 048
     Dates: start: 20220705

REACTIONS (1)
  - Diarrhoea [Not Recovered/Not Resolved]

NARRATIVE: CASE EVENT DATE: 20220714
